FAERS Safety Report 4692451-5 (Version None)
Quarter: 2005Q2

REPORT INFORMATION
  Report Type: 
  Country: None (occurrence: None)
  Receive Date: 20050613
  Receipt Date: 20050511
  Transmission Date: 20051028
  Serious: Yes (Hospitalization)
  Sender: FDA-Public Use
  Company Number: 2005-00876

PATIENT
  Age: 55 Year
  Sex: Female
  Weight: 77.7 kg

DRUGS (6)
  1. VELCADE [Suspect]
     Indication: MULTIPLE MYELOMA
     Dosage: 2.50 MG, 2/WEEK, INTRAVENOUS
     Route: 042
     Dates: start: 20050405, end: 20050405
  2. SCIO-469() CAPSULE [Suspect]
     Indication: MULTIPLE MYELOMA
     Dosage: 60.00 MG, TID, ORAL
     Route: 048
     Dates: start: 20050316
  3. ACETAMINOPHEN [Concomitant]
  4. TUSSIN CF (GUAIFENESIN, PHENYLPROPANOLAMINE HYDROCHLORIDE, DEXTROMETHO [Concomitant]
  5. AMITRIPTYLINE HCL [Concomitant]
  6. PAXIL [Concomitant]

REACTIONS (2)
  - PYREXIA [None]
  - STAPHYLOCOCCAL BACTERAEMIA [None]
